FAERS Safety Report 14880958 (Version 1)
Quarter: 2018Q2

REPORT INFORMATION
  Report Type: Spontaneous
  Country: ES (occurrence: ES)
  Receive Date: 20180511
  Receipt Date: 20180511
  Transmission Date: 20180711
  Serious: Yes (Hospitalization, Other)
  Sender: FDA-Public Use
  Company Number: ES-AUROBINDO-AUR-APL-2018-025321

PATIENT
  Age: 79 Year
  Sex: Male

DRUGS (3)
  1. SINTROM [Interacting]
     Active Substance: ACENOCOUMAROL
     Indication: ATRIAL FIBRILLATION
     Dosage: 16 MILLIGRAM,1 WEEK, (SEG?N CONTROLES DE HEMATOLOG?A, DESDE EL 03/02 DTS:16)
     Route: 048
     Dates: start: 20121109, end: 20170315
  2. CLOPIDOGREL [Suspect]
     Active Substance: CLOPIDOGREL BISULFATE
     Indication: PRODUCT USED FOR UNKNOWN INDICATION
     Dosage: 75 MILLIGRAM, ONCE A DAY, (75 MG, UNA VEZ AL D?A)
     Route: 048
     Dates: start: 20160906, end: 20180426
  3. ADIRO [Interacting]
     Active Substance: ASPIRIN
     Indication: ACUTE MYOCARDIAL INFARCTION
     Dosage: 100 MILLIGRAM, ONCE A DAY, (100 MG, UNA VEZ AL D?A)
     Route: 048
     Dates: start: 2006, end: 20170315

REACTIONS (1)
  - Rectal haemorrhage [Recovered/Resolved]

NARRATIVE: CASE EVENT DATE: 20170315
